FAERS Safety Report 8606864-X (Version None)
Quarter: 2012Q3

REPORT INFORMATION
  Report Type: 
  Country: None (occurrence: None)
  Receive Date: 20120820
  Receipt Date: 20120813
  Transmission Date: 20120928
  Serious: Yes (Hospitalization)
  Sender: FDA-Public Use
  Company Number: CN-ABBOTT-12P-035-0968894-00

PATIENT
  Sex: Female

DRUGS (2)
  1. PENICILLIN [Concomitant]
     Indication: PRODUCT USED FOR UNKNOWN INDICATION
  2. DEPAKENE [Suspect]
     Indication: HEAD INJURY
     Route: 042
     Dates: start: 20090410, end: 20090425

REACTIONS (5)
  - DRUG ERUPTION [None]
  - ANAPHYLACTOID REACTION [None]
  - RASH [None]
  - SWELLING [None]
  - PYREXIA [None]
